FAERS Safety Report 24111736 (Version 2)
Quarter: 2024Q3

REPORT INFORMATION
  Report Type: Spontaneous
  Country: IL (occurrence: IL)
  Receive Date: 20240718
  Receipt Date: 20240906
  Transmission Date: 20241016
  Serious: Yes (Hospitalization)
  Sender: TEVA
  Company Number: IL-TEVA-VS-3220743

PATIENT
  Age: 74 Year
  Sex: Male

DRUGS (2)
  1. BICALUTAMIDE [Suspect]
     Active Substance: BICALUTAMIDE
     Indication: Neoplasm
     Route: 065
  2. BICALUTAMIDE [Suspect]
     Active Substance: BICALUTAMIDE
     Indication: Neoplasm
     Route: 065

REACTIONS (4)
  - Gynaecomastia [Unknown]
  - Acute kidney injury [Recovering/Resolving]
  - Prostate cancer metastatic [Recovering/Resolving]
  - Urethral obstruction [Recovering/Resolving]

NARRATIVE: CASE EVENT DATE: 20100101
